FAERS Safety Report 8148821-6 (Version None)
Quarter: 2012Q1

REPORT INFORMATION
  Report Type: 
  Country: None (occurrence: None)
  Receive Date: 20120218
  Receipt Date: 20110718
  Transmission Date: 20120608
  Serious: No
  Sender: FDA-Public Use
  Company Number: US-ALLERGAN-1109682US

PATIENT
  Age: 69 Year
  Sex: Female

DRUGS (2)
  1. BOTULINUM TOXIN TYPE A [Suspect]
     Dosage: UNK
     Dates: start: 20110501, end: 20110501
  2. BOTULINUM TOXIN TYPE A [Suspect]
     Indication: BLEPHAROSPASM
     Dosage: UNK
     Route: 030
     Dates: start: 20110201, end: 20110201

REACTIONS (3)
  - CONTUSION [None]
  - SCAR [None]
  - SWELLING FACE [None]
